FAERS Safety Report 24135269 (Version 1)
Quarter: 2024Q3

REPORT INFORMATION
  Report Type: Spontaneous
  Country: JP (occurrence: JP)
  Receive Date: 20240725
  Receipt Date: 20240725
  Transmission Date: 20241017
  Serious: Yes (Hospitalization, Other)
  Sender: NOVITIUM PHARMA
  Company Number: JP-NOVITIUMPHARMA-2024JPNVP01335

PATIENT
  Age: 76 Year
  Sex: Female
  Weight: 54 kg

DRUGS (2)
  1. DEXAMETHASONE [Suspect]
     Active Substance: DEXAMETHASONE
     Indication: Prophylaxis of nausea and vomiting
  2. PEMETREXED [Concomitant]
     Active Substance: PEMETREXED
     Indication: Prophylaxis of nausea and vomiting

REACTIONS (1)
  - Diabetic ketoacidosis [Unknown]
